FAERS Safety Report 9537391 (Version 1)
Quarter: 2013Q3

REPORT INFORMATION
  Report Type: Spontaneous
  Country: US (occurrence: US)
  Receive Date: 20130919
  Receipt Date: 20130919
  Transmission Date: 20140515
  Serious: Yes (Hospitalization, Other)
  Sender: FDA-Public Use
  Company Number: PHHY2013US100605

PATIENT
  Age: 52 Year
  Sex: Male

DRUGS (4)
  1. CLOZAPINE [Suspect]
     Dosage: 600 MG, PER DAY
  2. CLOZAPINE [Suspect]
     Dosage: 100 MG, PER DAY
  3. CLOZAPINE [Suspect]
     Dosage: 300 MG, PER DAY
  4. CLOZAPINE [Suspect]
     Dosage: UNK (DOSE REDUCED)

REACTIONS (3)
  - Mania [Unknown]
  - Abnormal behaviour [Unknown]
  - Obsessive-compulsive disorder [Unknown]
